FAERS Safety Report 18567564 (Version 1)
Quarter: 2020Q4

REPORT INFORMATION
  Report Type: Spontaneous
  Country: DK (occurrence: DK)
  Receive Date: 20201201
  Receipt Date: 20201201
  Transmission Date: 20210114
  Serious: Yes (Hospitalization)
  Sender: FDA-Public Use
  Company Number: DK-JNJFOC-20200402094

PATIENT
  Age: 16 Year
  Sex: Female

DRUGS (2)
  1. ESTRADIOL. [Interacting]
     Active Substance: ESTRADIOL
     Indication: GONADAL DYSGENESIS
     Dosage: STRENGTH: 2 MG
     Route: 048
     Dates: start: 20191202
  2. CONCERTA [Suspect]
     Active Substance: METHYLPHENIDATE HYDROCHLORIDE
     Indication: ATTENTION DEFICIT HYPERACTIVITY DISORDER
     Dosage: STRENGTH: 18 MG
     Route: 048
     Dates: start: 20200120

REACTIONS (8)
  - Fear of death [Recovering/Resolving]
  - Psychotic disorder [Recovering/Resolving]
  - Hallucinations, mixed [Recovering/Resolving]
  - Drug interaction [Unknown]
  - Paranoia [Recovering/Resolving]
  - Tunnel vision [Recovering/Resolving]
  - Derealisation [Recovering/Resolving]
  - Vision blurred [Recovering/Resolving]

NARRATIVE: CASE EVENT DATE: 202002
